FAERS Safety Report 11420152 (Version 6)
Quarter: 2015Q3

REPORT INFORMATION
  Report Type: Spontaneous
  Country: US (occurrence: US)
  Receive Date: 20150826
  Receipt Date: 20150921
  Transmission Date: 20151125
  Serious: Yes (Hospitalization, Other)
  Sender: FDA-Public Use
  Company Number: US-GLAXOSMITHKLINE-US2015GSK120541

PATIENT
  Age: 35 Year
  Sex: Female
  Weight: 145.4 kg

DRUGS (2)
  1. GENTAMICIN CREAM [Suspect]
     Active Substance: GENTAMICIN
     Indication: CATHETER MANAGEMENT
  2. MUPIROCIN CALCIUM CREAM [Suspect]
     Active Substance: MUPIROCIN CALCIUM
     Indication: CATHETER MANAGEMENT
     Dosage: 1 APPLICATION QD AND PRN
     Route: 061
     Dates: end: 20150801

REACTIONS (4)
  - Medical device complication [Recovered/Resolved]
  - Drug administration error [Recovered/Resolved]
  - Catheter site infection [Unknown]
  - Peritonitis [Not Recovered/Not Resolved]

NARRATIVE: CASE EVENT DATE: 20150601
